FAERS Safety Report 21737478 (Version 1)
Quarter: 2022Q4

REPORT INFORMATION
  Report Type: Spontaneous
  Country: US (occurrence: US)
  Receive Date: 20221216
  Receipt Date: 20221216
  Transmission Date: 20230112
  Serious: No
  Sender: FDA-Public Use
  Company Number: US-AUROBINDO-AUR-APL-2022-021811

PATIENT
  Age: 30 Year
  Sex: Male
  Weight: 104 kg

DRUGS (1)
  1. FEXOFENADINE\PSEUDOEPHEDRINE [Suspect]
     Active Substance: FEXOFENADINE\PSEUDOEPHEDRINE
     Indication: Hypersensitivity
     Dosage: 1 DOSAGE FORM, ONCE A DAY
     Route: 065
     Dates: start: 20220608

REACTIONS (2)
  - Tremor [Unknown]
  - Paraesthesia [Unknown]

NARRATIVE: CASE EVENT DATE: 20220608
